FAERS Safety Report 5201010-7 (Version None)
Quarter: 2007Q1

REPORT INFORMATION
  Report Type: 
  Country: None (occurrence: None)
  Receive Date: 20070108
  Receipt Date: 20061229
  Transmission Date: 20070707
  Serious: Yes (Hospitalization)
  Sender: FDA-Public Use
  Company Number: JP-GLAXOSMITHKLINE-B0451865A

PATIENT
  Age: 67 Year
  Sex: Male

DRUGS (6)
  1. ZIAGEN [Suspect]
     Indication: HIV INFECTION
     Dosage: 600MG PER DAY
     Route: 048
     Dates: start: 20021001
  2. RETROVIR [Suspect]
     Indication: HIV INFECTION
     Dosage: 400MG PER DAY
     Route: 048
     Dates: start: 20020621
  3. STOCRIN [Suspect]
     Indication: HIV INFECTION
     Dosage: 600MG PER DAY
     Route: 048
     Dates: start: 20020621
  4. KALETRA [Suspect]
     Indication: HIV INFECTION
     Route: 048
     Dates: start: 20020621
  5. SELBEX [Concomitant]
     Indication: GASTRITIS
     Dosage: 50MG THREE TIMES PER DAY
     Route: 048
     Dates: start: 20040401, end: 20040530
  6. MECOBALAMIN [Concomitant]
     Dates: start: 20030101

REACTIONS (8)
  - ABDOMINAL PAIN UPPER [None]
  - BLOOD ALKALINE PHOSPHATASE INCREASED [None]
  - CHOLECYSTITIS ACUTE [None]
  - GAMMA-GLUTAMYLTRANSFERASE INCREASED [None]
  - HEPATIC ENZYME INCREASED [None]
  - HERPES ZOSTER [None]
  - IMMUNE RECONSTITUTION SYNDROME [None]
  - PYREXIA [None]
